FAERS Safety Report 21303744 (Version 1)
Quarter: 2022Q3

REPORT INFORMATION
  Report Type: Spontaneous
  Country: US (occurrence: None)
  Receive Date: 20220907
  Receipt Date: 20220907
  Transmission Date: 20221027
  Serious: Yes (Other)
  Sender: FDA-Public Use
  Company Number: None

PATIENT
  Age: 56 Year
  Sex: Female

DRUGS (2)
  1. HUMIRA [Suspect]
     Active Substance: ADALIMUMAB
     Indication: Psoriasis
     Dosage: OTHER FREQUENCY : Q2WEEKS;?
     Route: 058
     Dates: start: 20220209
  2. HUMIRA [Suspect]
     Active Substance: ADALIMUMAB
     Indication: Psoriatic arthropathy

REACTIONS (6)
  - Disease progression [None]
  - Psoriatic arthropathy [None]
  - Musculoskeletal stiffness [None]
  - Dysstasia [None]
  - Gait inability [None]
  - Loss of personal independence in daily activities [None]

NARRATIVE: CASE EVENT DATE: 20220624
